FAERS Safety Report 15155896 (Version 1)
Quarter: 2018Q3

REPORT INFORMATION
  Report Type: Spontaneous
  Country: GB (occurrence: GB)
  Receive Date: 20180717
  Receipt Date: 20180717
  Transmission Date: 20181010
  Serious: Yes (Other)
  Sender: FDA-Public Use
  Company Number: GB-US WORLDMEDS, LLC-STA_00019524

PATIENT
  Sex: Male

DRUGS (17)
  1. ROPINIROLE. [Suspect]
     Active Substance: ROPINIROLE
     Indication: PRODUCT USED FOR UNKNOWN INDICATION
     Dosage: UNK
     Route: 065
     Dates: start: 2002, end: 2007
  2. ENTACAPONE. [Suspect]
     Active Substance: ENTACAPONE
     Indication: PRODUCT USED FOR UNKNOWN INDICATION
     Dosage: UNK
     Route: 065
     Dates: start: 2002, end: 200909
  3. PRAMIPEXOLE. [Suspect]
     Active Substance: PRAMIPEXOLE
     Indication: PRODUCT USED FOR UNKNOWN INDICATION
     Dosage: UNK
     Route: 065
     Dates: start: 2002, end: 2007
  4. CO?CARELDOPA [Suspect]
     Active Substance: CARBIDOPA\LEVODOPA
     Indication: PRODUCT USED FOR UNKNOWN INDICATION
     Dosage: DOSE 5 TIMES A DAY
     Route: 065
     Dates: start: 2000, end: 200909
  5. ROPINIROLE. [Suspect]
     Active Substance: ROPINIROLE
     Dosage: 24 MG, QD
     Route: 065
     Dates: start: 200909
  6. AMANTADINE. [Suspect]
     Active Substance: AMANTADINE HYDROCHLORIDE
     Dosage: UNK
     Route: 065
     Dates: start: 2002, end: 2007
  7. AMANTADINE. [Suspect]
     Active Substance: AMANTADINE HYDROCHLORIDE
     Dosage: 100 MG, BID
     Route: 065
     Dates: start: 200811
  8. SELEGILINE [Suspect]
     Active Substance: SELEGILINE
     Indication: PRODUCT USED FOR UNKNOWN INDICATION
     Dosage: 10 MG, QD
     Route: 065
     Dates: start: 1995
  9. CO?CARELDOPA [Suspect]
     Active Substance: CARBIDOPA\LEVODOPA
     Dosage: 750 MG, (62.5 MG,12 IN 1 D)
     Route: 065
     Dates: start: 200909, end: 201007
  10. CO?CARELDOPA [Suspect]
     Active Substance: CARBIDOPA\LEVODOPA
     Dosage: 62.5 MG, UNK
     Route: 065
     Dates: start: 201007
  11. LEVODOPA [Suspect]
     Active Substance: LEVODOPA
     Indication: PRODUCT USED FOR UNKNOWN INDICATION
     Dosage: UNK
     Route: 065
     Dates: start: 2002, end: 2007
  12. BENSERAZIDE [Suspect]
     Active Substance: BENSERAZIDE
     Indication: PRODUCT USED FOR UNKNOWN INDICATION
     Dosage: UNK
     Route: 065
     Dates: start: 2005, end: 2007
  13. AMANTADINE. [Suspect]
     Active Substance: AMANTADINE HYDROCHLORIDE
     Indication: PRODUCT USED FOR UNKNOWN INDICATION
     Dosage: UNK
     Route: 065
  14. ROTIGOTINE [Concomitant]
     Active Substance: ROTIGOTINE
     Indication: PRODUCT USED FOR UNKNOWN INDICATION
     Dosage: UNK
     Route: 065
     Dates: start: 2007
  15. APOMORPHINE HYDROCHLORIDE [Suspect]
     Active Substance: APOMORPHINE HYDROCHLORIDE
     Indication: PRODUCT USED FOR UNKNOWN INDICATION
     Dosage: UNK
     Route: 058
     Dates: start: 2007, end: 2007
  16. AMANTADINE. [Suspect]
     Active Substance: AMANTADINE HYDROCHLORIDE
     Dosage: 50 MG, BID
     Route: 065
     Dates: start: 201007
  17. ORPHENADRINE [Suspect]
     Active Substance: ORPHENADRINE
     Indication: PRODUCT USED FOR UNKNOWN INDICATION
     Dosage: 50 MG, TID
     Dates: start: 201007

REACTIONS (11)
  - Skin mass [Recovered/Resolved]
  - Transient ischaemic attack [Unknown]
  - Decreased appetite [Recovered/Resolved]
  - Tremor [Recovered/Resolved]
  - Memory impairment [Recovering/Resolving]
  - Haemorrhage [Recovered/Resolved]
  - On and off phenomenon [Unknown]
  - Dyskinesia [Recovered/Resolved]
  - Depression [Recovering/Resolving]
  - Hyperhidrosis [Recovered/Resolved]
  - Balance disorder [Unknown]

NARRATIVE: CASE EVENT DATE: 2002
